FAERS Safety Report 9102200 (Version 1)
Quarter: 2013Q1

REPORT INFORMATION
  Report Type: Spontaneous
  Country: US (occurrence: US)
  Receive Date: 20130218
  Receipt Date: 20130218
  Transmission Date: 20140127
  Serious: No
  Sender: FDA-Public Use
  Company Number: US-009507513-1302USA007616

PATIENT
  Sex: Female

DRUGS (1)
  1. IMPLANON [Suspect]
     Dosage: 1 ROD INSERTED FOR UPTO 3 YEARS
     Route: 059
     Dates: start: 20100106, end: 20130130

REACTIONS (4)
  - Device breakage [Unknown]
  - Incorrect drug administration duration [Unknown]
  - Product quality issue [Unknown]
  - No adverse event [Unknown]
